FAERS Safety Report 5145711-8 (Version None)
Quarter: 2006Q4

REPORT INFORMATION
  Report Type: 
  Country: None (occurrence: None)
  Receive Date: 20060911
  Receipt Date: 20051202
  Transmission Date: 20070319
  Serious: Yes (Hospitalization)
  Sender: FDA-Public Use
  Company Number: TNZUS200500113

PATIENT
  Age: 62 Year
  Sex: Female
  Weight: 86 kg

DRUGS (18)
  1. INNOHEP [Suspect]
     Indication: DEEP VEIN THROMBOSIS
     Dosage: 175 IU/KG (15000 IU), SUBCUTANEOUS
     Route: 058
     Dates: start: 20051112, end: 20051113
  2. ASPIRIN [Concomitant]
  3. FAMOTIDINE [Concomitant]
  4. LISINOPRIL [Concomitant]
  5. ACETAMINOPHEN [Concomitant]
  6. PHENYTOIN [Concomitant]
  7. NPH INSULIN [Concomitant]
  8. ACETYLCYSTEINE [Concomitant]
  9. IPRATROPIUM/ALBUTEROL (SALBUTAMOL W/IPRATROPIUM) [Concomitant]
  10. AMLODIPINE [Concomitant]
  11. ZINC SULFATE (ZINC SULFATE) [Concomitant]
  12. SIMVASTATIN [Concomitant]
  13. ASCORBIC ACID [Concomitant]
  14. LANSOPRAZOLE [Concomitant]
  15. REGULAR INSULIN [Concomitant]
  16. WARFARIN SODIUM [Concomitant]
  17. VANCOMYCIN [Concomitant]
  18. AMIKACIN [Concomitant]

REACTIONS (1)
  - GASTROINTESTINAL HAEMORRHAGE [None]
